FAERS Safety Report 24411046 (Version 1)
Quarter: 2024Q4

REPORT INFORMATION
  Report Type: Spontaneous
  Country: CN (occurrence: CN)
  Receive Date: 20241008
  Receipt Date: 20241008
  Transmission Date: 20250115
  Serious: Yes (Other)
  Sender: GLAND PHARMA
  Company Number: CN-GLANDPHARMA-CN-2024GLNLIT00800

PATIENT
  Age: 53 Year
  Sex: Female

DRUGS (3)
  1. PACLITAXEL [Suspect]
     Active Substance: PACLITAXEL
     Indication: Ovarian cancer stage II
     Route: 065
  2. PACLITAXEL [Suspect]
     Active Substance: PACLITAXEL
     Dosage: 135 MG/M2
     Route: 065
  3. CARBOPLATIN [Concomitant]
     Active Substance: CARBOPLATIN
     Dosage: (175  MG/M2 ) ON DAY 1, WITH A 3-WEEK CYCLE LENGTH FOR A TOTAL OF 6  CYCLES.
     Route: 065

REACTIONS (1)
  - Drug-induced liver injury [Recovered/Resolved]
